FAERS Safety Report 5251441-4 (Version None)
Quarter: 2007Q1

REPORT INFORMATION
  Report Type: 
  Country: None (occurrence: None)
  Receive Date: 20070228
  Receipt Date: 20060602
  Transmission Date: 20070707
  Serious: No
  Sender: FDA-Public Use
  Company Number: US-GLAXOSMITHKLINE-A0604892A

PATIENT
  Sex: Female
  Weight: 59.1 kg

DRUGS (5)
  1. LAMICTAL [Suspect]
     Indication: MAJOR DEPRESSION
     Dosage: 150MG UNKNOWN
     Route: 048
     Dates: start: 20000101
  2. LITHIUM CARBONATE [Suspect]
     Indication: DRUG USE FOR UNKNOWN INDICATION
     Route: 065
  3. WELLBUTRIN [Concomitant]
     Dates: start: 19980101
  4. BUSPAR [Concomitant]
     Dosage: 15MG TWICE PER DAY
     Dates: start: 19980101
  5. DOXEPIN HCL [Concomitant]
     Dates: start: 19980101

REACTIONS (3)
  - ADVERSE EVENT [None]
  - DEPRESSION [None]
  - DIPLOPIA [None]
